FAERS Safety Report 7152480-9 (Version None)
Quarter: 2010Q4

REPORT INFORMATION
  Report Type: 
  Country: None (occurrence: None)
  Receive Date: 20101213
  Receipt Date: 20101206
  Transmission Date: 20110411
  Serious: Yes (Other)
  Sender: FDA-Public Use
  Company Number: US-PFIZER INC-2010151397

PATIENT
  Sex: Female
  Weight: 92.1 kg

DRUGS (5)
  1. CHANTIX [Suspect]
     Indication: SMOKING CESSATION THERAPY
     Dosage: 0.5 MG, 1X/DAY
     Route: 048
     Dates: start: 20100424, end: 20100515
  2. XANAX [Concomitant]
     Indication: ANXIETY
     Dosage: UNK
  3. SINEQUAN [Concomitant]
     Indication: ANXIETY
     Dosage: UNK
  4. LISINOPRIL [Concomitant]
     Indication: HYPERTENSION
     Dosage: UNK
  5. VYTORIN [Concomitant]
     Indication: BLOOD CHOLESTEROL INCREASED
     Dosage: UNK

REACTIONS (5)
  - CARBON DIOXIDE INCREASED [None]
  - CRYING [None]
  - DEPRESSION [None]
  - GASTROINTESTINAL DISORDER [None]
  - NAUSEA [None]
